FAERS Safety Report 8120924-1 (Version None)
Quarter: 2012Q1

REPORT INFORMATION
  Report Type: 
  Country: None (occurrence: None)
  Receive Date: 20120208
  Receipt Date: 20120130
  Transmission Date: 20120608
  Serious: Yes (Other)
  Sender: FDA-Public Use
  Company Number: US-BAYER-2011-057017

PATIENT
  Age: 22 Year
  Sex: Female
  Weight: 80 kg

DRUGS (14)
  1. DIAMOX SRC [Concomitant]
     Indication: PAPILLOEDEMA
     Dosage: 1/2 TO 2 TABLETS, EVERY AM
     Route: 048
  2. ZITHROMAX [Concomitant]
  3. PHENERGAN [Concomitant]
     Indication: NAUSEA
  4. ALBUTEROL [Concomitant]
     Indication: ASTHMA
     Dosage: UNK UNK, PRN
     Route: 055
  5. ATENOLOL [Concomitant]
  6. YAZ [Suspect]
     Indication: POLYCYSTIC OVARIES
     Dosage: UNK
     Dates: start: 20090707, end: 20090723
  7. SINGULAIR [Concomitant]
     Indication: ASTHMA
     Dosage: 1 TABLET/DAILY AT BEDTIME
     Route: 048
  8. XOPENEX [Concomitant]
     Indication: ASTHMA
     Dosage: 1-2 PUFFS AS NEEDED/BEFORE EXERCISE
     Route: 055
  9. TOPROL-XL [Concomitant]
  10. ATIVAN [Concomitant]
     Indication: ANXIETY
  11. FLONASE [Concomitant]
     Indication: HYPERSENSITIVITY
     Dosage: 2 SPRAYS, PRN
     Route: 045
  12. NASONEX [Concomitant]
     Indication: RHINITIS ALLERGIC
  13. ALLEGRA [Concomitant]
     Indication: HYPERSENSITIVITY
     Dosage: 1 TABLET, QD
     Route: 048
  14. BENZODIAZEPINE [Concomitant]
     Indication: ANXIETY

REACTIONS (6)
  - EMOTIONAL DISTRESS [None]
  - VERTIGO POSITIONAL [None]
  - ANXIETY [None]
  - VERTIGO [None]
  - TACHYCARDIA [None]
  - PAIN [None]
